FAERS Safety Report 12740532 (Version 1)
Quarter: 2016Q3

REPORT INFORMATION
  Report Type: Spontaneous
  Country: GB (occurrence: GB)
  Receive Date: 20160913
  Receipt Date: 20160913
  Transmission Date: 20161109
  Serious: Yes (Hospitalization, Other)
  Sender: FDA-Public Use
  Company Number: GB-JNJFOC-20160900947

PATIENT

DRUGS (15)
  1. DICLOFENAC [Suspect]
     Active Substance: DICLOFENAC
     Indication: PRODUCT USED FOR UNKNOWN INDICATION
     Route: 065
  2. CANNABIS [Suspect]
     Active Substance: CANNABIS SATIVA SUBSP. INDICA TOP
     Indication: PRODUCT USED FOR UNKNOWN INDICATION
     Route: 065
  3. PARACETAMOL [Suspect]
     Active Substance: ACETAMINOPHEN
     Route: 065
  4. PARACETAMOL [Suspect]
     Active Substance: ACETAMINOPHEN
     Indication: PRODUCT USED FOR UNKNOWN INDICATION
     Route: 065
  5. IBUPROFEN. [Suspect]
     Active Substance: IBUPROFEN
     Route: 065
  6. CODEINE [Suspect]
     Active Substance: CODEINE
     Indication: PRODUCT USED FOR UNKNOWN INDICATION
     Route: 065
  7. DIAMORPHINE [Suspect]
     Active Substance: DIACETYLMORPHINE
     Indication: PRODUCT USED FOR UNKNOWN INDICATION
     Route: 065
  8. MORPHINE [Suspect]
     Active Substance: MORPHINE
     Indication: PRODUCT USED FOR UNKNOWN INDICATION
     Route: 065
  9. IBUPROFEN. [Suspect]
     Active Substance: IBUPROFEN
     Indication: PRODUCT USED FOR UNKNOWN INDICATION
     Route: 065
  10. METHADONE [Suspect]
     Active Substance: METHADONE HYDROCHLORIDE
     Indication: PRODUCT USED FOR UNKNOWN INDICATION
     Route: 065
  11. ASPIRIN. [Suspect]
     Active Substance: ASPIRIN
     Indication: PRODUCT USED FOR UNKNOWN INDICATION
     Route: 065
  12. COCAINE [Suspect]
     Active Substance: COCAINE
     Indication: PRODUCT USED FOR UNKNOWN INDICATION
     Route: 065
  13. AMPHETAMINE [Suspect]
     Active Substance: AMPHETAMINE
     Indication: PRODUCT USED FOR UNKNOWN INDICATION
     Route: 065
  14. BUPRENORPHINE. [Suspect]
     Active Substance: BUPRENORPHINE
     Indication: PRODUCT USED FOR UNKNOWN INDICATION
     Route: 065
  15. ECSTASY [Suspect]
     Active Substance: METHYLENEDIOXYMETHAMPHETAMINE
     Indication: PRODUCT USED FOR UNKNOWN INDICATION
     Route: 065

REACTIONS (35)
  - Respiratory distress [Unknown]
  - Overdose [Unknown]
  - Suicidal ideation [Unknown]
  - Back pain [Unknown]
  - Haemorrhage [Unknown]
  - Aggression [Unknown]
  - Physical assault [Unknown]
  - Fall [Unknown]
  - Accident at work [Unknown]
  - Malaise [Unknown]
  - Road traffic accident [Unknown]
  - Diabetic complication [Unknown]
  - Toxicity to various agents [Unknown]
  - Chest pain [Unknown]
  - Exposure to unspecified agent [Unknown]
  - Gun shot wound [Unknown]
  - Syncope [Unknown]
  - Abdominal pain [Unknown]
  - Abdominal symptom [Unknown]
  - Headache [Unknown]
  - Laceration [Unknown]
  - Substance abuse [Unknown]
  - Respiratory disorder [Unknown]
  - Cardio-respiratory arrest [Unknown]
  - Psychiatric symptom [Unknown]
  - Sexual abuse [Unknown]
  - Stab wound [Unknown]
  - Cerebrovascular accident [Unknown]
  - Adverse event [Unknown]
  - Depressed level of consciousness [Unknown]
  - Multiple allergies [Unknown]
  - Seizure [Unknown]
  - Cardiac disorder [Unknown]
  - Injury [Unknown]
  - Loss of consciousness [Unknown]
